FAERS Safety Report 11156017 (Version 1)
Quarter: 2015Q2

REPORT INFORMATION
  Report Type: Spontaneous
  Country: US (occurrence: None)
  Receive Date: 20150601
  Receipt Date: 20150601
  Transmission Date: 20150821
  Serious: No
  Sender: FDA-Public Use
  Company Number: None

PATIENT
  Age: 54 Year
  Sex: Female

DRUGS (12)
  1. IBUPROFEN. [Concomitant]
     Active Substance: IBUPROFEN
  2. EXTAVIA [Concomitant]
     Active Substance: INTERFERON BETA-1B
  3. AMANTADINE [Concomitant]
     Active Substance: AMANTADINE
  4. ATORVASTATIN [Concomitant]
     Active Substance: ATORVASTATIN
  5. CITALOPRAM [Concomitant]
     Active Substance: CITALOPRAM HYDROBROMIDE
  6. ALPRAZOLAM. [Concomitant]
     Active Substance: ALPRAZOLAM
  7. OMEPRAZOLE. [Concomitant]
     Active Substance: OMEPRAZOLE
  8. LISINOPRIL. [Concomitant]
     Active Substance: LISINOPRIL
  9. TRAZODONE [Concomitant]
     Active Substance: TRAZODONE HYDROCHLORIDE
  10. AMPYRA [Suspect]
     Active Substance: DALFAMPRIDINE
     Indication: MULTIPLE SCLEROSIS
     Route: 048
     Dates: start: 20130508
  11. AMPYRA [Concomitant]
     Active Substance: DALFAMPRIDINE
  12. CYCLOBENZAPRINE [Concomitant]
     Active Substance: CYCLOBENZAPRINE

REACTIONS (1)
  - Laboratory test abnormal [None]

NARRATIVE: CASE EVENT DATE: 20150215
